FAERS Safety Report 24829297 (Version 1)
Quarter: 2025Q1

REPORT INFORMATION
  Report Type: Other
  Country: IR (occurrence: IR)
  Receive Date: 20250110
  Receipt Date: 20250110
  Transmission Date: 20250409
  Serious: Yes (Death, Hospitalization, Other)
  Sender: ANI
  Company Number: IR-ANIPHARMA-015334

PATIENT
  Age: 5 Year
  Sex: Male

DRUGS (1)
  1. CLOBETASOL PROPIONATE [Suspect]
     Active Substance: CLOBETASOL PROPIONATE
     Indication: Psoriasis

REACTIONS (2)
  - Cushing^s syndrome [Fatal]
  - Incorrect dose administered [Fatal]
